FAERS Safety Report 9712443 (Version 1)
Quarter: 2013Q4

REPORT INFORMATION
  Report Type: Spontaneous
  Country: US (occurrence: US)
  Receive Date: 20131126
  Receipt Date: 20131126
  Transmission Date: 20140711
  Serious: No
  Sender: FDA-Public Use
  Company Number: US-009507513-1311USA009176

PATIENT
  Sex: Female

DRUGS (2)
  1. CORICIDIN HCP MAXIMUM STRENGTH FLU [Suspect]
     Indication: PRODUCT USED FOR UNKNOWN INDICATION
     Dosage: UNK, ONCE
     Route: 048
     Dates: start: 20131107
  2. CORICIDIN HCP MAXIMUM STRENGTH FLU [Suspect]
     Dosage: UNK, ONCE
     Route: 048
     Dates: start: 20131106

REACTIONS (3)
  - Hypotension [Not Recovered/Not Resolved]
  - Dysstasia [Not Recovered/Not Resolved]
  - Inappropriate schedule of drug administration [Unknown]
